FAERS Safety Report 14249165 (Version 1)
Quarter: 2017Q4

REPORT INFORMATION
  Report Type: Spontaneous
  Country: US (occurrence: US)
  Receive Date: 20171204
  Receipt Date: 20171204
  Transmission Date: 20180321
  Serious: Yes (Other)
  Sender: FDA-Public Use
  Company Number: US-IMPAX LABORATORIES, INC-2017-IPXL-03449

PATIENT
  Age: 24 Year
  Sex: Male

DRUGS (2)
  1. BACLOFEN. [Suspect]
     Active Substance: BACLOFEN
     Indication: PRODUCT USE IN UNAPPROVED INDICATION
     Dosage: TITRATED OFF WITH GRADUAL TRANSITION TO ORAL, UNK
     Route: 048
  2. BACLOFEN. [Suspect]
     Active Substance: BACLOFEN
     Indication: QUADRIPARESIS
     Dosage: UNK
     Route: 037

REACTIONS (4)
  - Complication associated with device [Unknown]
  - Implant site extravasation [Unknown]
  - Central nervous system infection [Unknown]
  - Product use in unapproved indication [Unknown]
